FAERS Safety Report 5300415-3 (Version None)
Quarter: 2007Q2

REPORT INFORMATION
  Report Type: 
  Country: None (occurrence: None)
  Receive Date: 20070418
  Receipt Date: 20070410
  Transmission Date: 20071010
  Serious: Yes (Hospitalization, Other)
  Sender: FDA-Public Use
  Company Number: PHRM2007FR01230

PATIENT
  Age: 67 Year
  Sex: Female

DRUGS (6)
  1. NEORAL [Suspect]
     Indication: RENAL TRANSPLANT
     Route: 048
  2. CORTANCYL [Suspect]
     Indication: RENAL TRANSPLANT
     Route: 048
  3. LEVOTHYROXINE SODIUM [Concomitant]
     Indication: HYPOTHYROIDISM
     Dosage: 50 A?G PER DAY
     Route: 048
  4. LEVOTHYROXINE SODIUM [Concomitant]
     Dosage: 75 A?G PER DAY
     Route: 048
  5. LASIX [Concomitant]
  6. HYDROCORTISONE [Concomitant]

REACTIONS (19)
  - ADRENAL INSUFFICIENCY [None]
  - APATHY [None]
  - ASTHENIA [None]
  - BACTERIAL INFECTION [None]
  - BLOOD CREATININE INCREASED [None]
  - BLOOD CULTURE POSITIVE [None]
  - BLOOD THYROID STIMULATING HORMONE INCREASED [None]
  - BLOOD UREA INCREASED [None]
  - C-REACTIVE PROTEIN INCREASED [None]
  - CEREBELLAR INFARCTION [None]
  - CULTURE URINE POSITIVE [None]
  - ESCHERICHIA INFECTION [None]
  - HYPERTHERMIA [None]
  - HYPONATRAEMIA [None]
  - LEUKOCYTOSIS [None]
  - MITRAL VALVE REPAIR [None]
  - MITRAL VALVE STENOSIS [None]
  - SOMNOLENCE [None]
  - STAPHYLOCOCCAL INFECTION [None]
